FAERS Safety Report 9626546 (Version 2)
Quarter: 2013Q4

REPORT INFORMATION
  Report Type: Spontaneous
  Country: US (occurrence: US)
  Receive Date: 20131016
  Receipt Date: 20131028
  Transmission Date: 20140711
  Serious: Yes (Other)
  Sender: FDA-Public Use
  Company Number: US-BAYER-2013-124934

PATIENT
  Age: 28 Year
  Sex: Female
  Weight: 54.42 kg

DRUGS (5)
  1. MIRENA [Suspect]
     Indication: CONTRACEPTION
     Dosage: 20 MCG/24HR, CONT
     Route: 015
     Dates: start: 20090522, end: 201009
  2. NEURONTIN [Concomitant]
     Indication: MIGRAINE
     Dosage: UNK
     Dates: start: 2004, end: 2008
  3. NEURONTIN [Concomitant]
     Indication: MIGRAINE
     Dosage: UNK
     Dates: start: 2009
  4. PEPCID [Concomitant]
     Dosage: UNK UNK, QD
  5. ANTIVERT [Concomitant]
     Dosage: UNK UNK, PRN

REACTIONS (14)
  - Uterine perforation [None]
  - Emotional distress [None]
  - Pain [None]
  - Injury [None]
  - Mental disorder [None]
  - Infertility female [None]
  - Dyspareunia [None]
  - Coital bleeding [None]
  - Depression [None]
  - Anxiety [None]
  - Sexual dysfunction [None]
  - Sleep disorder [None]
  - Depressed mood [None]
  - Pollakiuria [None]
